FAERS Safety Report 23415799 (Version 1)
Quarter: 2024Q1

REPORT INFORMATION
  Report Type: Spontaneous
  Country: US (occurrence: None)
  Receive Date: 20240117
  Receipt Date: 20240117
  Transmission Date: 20240410
  Serious: Yes (Other)
  Sender: FDA-Public Use
  Company Number: None

PATIENT
  Age: 68 Year
  Sex: Female

DRUGS (7)
  1. CINACALCET [Suspect]
     Active Substance: CINACALCET
     Indication: Organ transplant
     Dosage: FREQUENCY : DAILY;?
     Route: 048
     Dates: start: 20230901
  2. BIOTIN SOFTGELS [Concomitant]
  3. COLCHICINE [Concomitant]
     Active Substance: COLCHICINE
  4. TACROLIMUS [Concomitant]
     Active Substance: TACROLIMUS
  5. MYCOPHENOLIC ACID [Concomitant]
     Active Substance: MYCOPHENOLIC ACID
  6. VALGANCICLOVIR [Concomitant]
     Active Substance: VALGANCICLOVIR
  7. GRANIX [Concomitant]
     Active Substance: TBO-FILGRASTIM

REACTIONS (1)
  - Fracture [None]
